FAERS Safety Report 20840713 (Version 1)
Quarter: 2022Q2

REPORT INFORMATION
  Report Type: Spontaneous
  Country: KR (occurrence: KR)
  Receive Date: 20220517
  Receipt Date: 20220517
  Transmission Date: 20220721
  Serious: Yes (Other)
  Sender: FDA-Public Use
  Company Number: KR-GLAXOSMITHKLINE-KR2022APC077371

PATIENT

DRUGS (2)
  1. VALTREX [Suspect]
     Active Substance: VALACYCLOVIR HYDROCHLORIDE
     Indication: Post herpetic neuralgia
     Dosage: 1 DF, QD
     Route: 048
     Dates: start: 20190320, end: 20190330
  2. VALTREX [Suspect]
     Active Substance: VALACYCLOVIR HYDROCHLORIDE
     Dosage: 1 DF, QD
     Route: 048

REACTIONS (2)
  - Gastrointestinal haemorrhage [Recovered/Resolved]
  - Dyspepsia [Recovered/Resolved]

NARRATIVE: CASE EVENT DATE: 20190327
